FAERS Safety Report 18349598 (Version 2)
Quarter: 2020Q4

REPORT INFORMATION
  Report Type: Spontaneous
  Country: US (occurrence: US)
  Receive Date: 20201006
  Receipt Date: 20201019
  Transmission Date: 20210114
  Serious: No
  Sender: FDA-Public Use
  Company Number: US-VERTEX PHARMACEUTICALS-2020-019392

PATIENT
  Age: 16 Year
  Sex: Male

DRUGS (9)
  1. GLUTATHIONE [Concomitant]
     Active Substance: GLUTATHIONE
     Dosage: 2.5 TABS, DAILY
  2. VEGGIE JOINT FOOD [Concomitant]
     Dosage: 1 CAPSULE, DAILY
  3. JUICE PLUS [Concomitant]
     Active Substance: DIETARY SUPPLEMENT
     Dosage: 1 CAPULE, DAILY
  4. MINOCYCLINE [Concomitant]
     Active Substance: MINOCYCLINE HYDROCHLORIDE
     Dosage: 100 MG , 1 CAPSULE, 9-12 HOURS
  5. MOXIFLOXACIN. [Concomitant]
     Active Substance: MOXIFLOXACIN
     Dosage: 400 MG, 1 TAB FOR 9 DAYS
  6. N-ACETYLCYSTEINE [Concomitant]
     Active Substance: ACETYLCYSTEINE
     Dosage: 2 CAPSULES, DAILY
  7. KRILL OIL [Concomitant]
     Active Substance: DIETARY SUPPLEMENT\KRILL OIL
     Dosage: 1 CAPSULE, DAILY
  8. TRIKAFTA [Suspect]
     Active Substance: ELEXACAFTOR\IVACAFTOR\TEZACAFTOR
     Indication: CYSTIC FIBROSIS
     Dosage: 2 TABS (100 MG ELEXACAFTOR/ 50 MG TEZACAFTOR/ 75 MG IVACAFTOR) AM; 1 TAB (150MG IVACAFTOR) PM
     Route: 048
     Dates: start: 201911
  9. SUPRA OMEGA [Concomitant]
     Dosage: 500 MG, 1 CAPSULE, DAILY

REACTIONS (1)
  - Blood bilirubin increased [Not Recovered/Not Resolved]

NARRATIVE: CASE EVENT DATE: 2020
